FAERS Safety Report 20706048 (Version 4)
Quarter: 2022Q4

REPORT INFORMATION
  Report Type: Report from Study
  Country: GB (occurrence: GB)
  Receive Date: 20220413
  Receipt Date: 20221007
  Transmission Date: 20230112
  Serious: Yes (Hospitalization, Other)
  Sender: FDA-Public Use
  Company Number: GB-TAKEDA-2022TUS024472

PATIENT
  Age: 36 Year
  Sex: Female

DRUGS (1)
  1. VEDOLIZUMAB [Suspect]
     Active Substance: VEDOLIZUMAB
     Indication: Colitis ulcerative
     Dosage: 108 MILLIGRAM, Q2WEEKS
     Route: 058

REACTIONS (9)
  - Adverse drug reaction [Not Recovered/Not Resolved]
  - Rectal haemorrhage [Unknown]
  - Anaemia [Unknown]
  - Injection site pain [Unknown]
  - Mucous stools [Unknown]
  - Anal incontinence [Unknown]
  - Dyschezia [Unknown]
  - Constipation [Unknown]
  - Arthralgia [Unknown]

NARRATIVE: CASE EVENT DATE: 20220411
